FAERS Safety Report 16788387 (Version 1)
Quarter: 2019Q3

REPORT INFORMATION
  Report Type: Spontaneous
  Country: CN (occurrence: CN)
  Receive Date: 20190910
  Receipt Date: 20190910
  Transmission Date: 20191005
  Serious: Yes (Other)
  Sender: FDA-Public Use
  Company Number: CN-BAXTER-2019BAX017484

PATIENT
  Age: 48 Year
  Sex: Female
  Weight: 81 kg

DRUGS (5)
  1. RECOMBINANT HUMAN GRANULOCYTE COLONY-STIMULATING FACTOR [Concomitant]
     Indication: PROPHYLAXIS
     Route: 065
     Dates: start: 20190726
  2. STERILE WATER FOR INJECTION [Suspect]
     Active Substance: WATER
     Indication: MEDICATION DILUTION
     Dosage: AIDASHENG 140 MG + STERILE WATER FOR INJECTION
     Route: 041
     Dates: start: 20190730, end: 20190730
  3. 0.9% SODIUM CHLORIDE INJECTION [Suspect]
     Active Substance: SODIUM CHLORIDE
     Indication: MEDICATION DILUTION
     Dosage: ENDOXAN 1 GRAM + 0.9% NS
     Route: 041
     Dates: start: 20190730, end: 20190730
  4. AIDASHENG [Suspect]
     Active Substance: EPIRUBICIN HYDROCHLORIDE
     Indication: BREAST CANCER FEMALE
     Dosage: AIDASHENG + STERILE WATER FOR INJECTION 80 ML
     Route: 041
     Dates: start: 20190730, end: 20190730
  5. ENDOXAN [Suspect]
     Active Substance: CYCLOPHOSPHAMIDE
     Indication: BREAST CANCER FEMALE
     Dosage: ENDOXAN + 0.9% NS (NORMAL SALINE) 50 ML
     Route: 041
     Dates: start: 20190730, end: 20190730

REACTIONS (1)
  - Bone marrow failure [Recovered/Resolved]

NARRATIVE: CASE EVENT DATE: 20190805
